FAERS Safety Report 25862479 (Version 4)
Quarter: 2025Q4

REPORT INFORMATION
  Report Type: Report from Study
  Country: US (occurrence: US)
  Receive Date: 20250930
  Receipt Date: 20251015
  Transmission Date: 20260117
  Serious: Yes (Other)
  Sender: ACADIA PHARMACEUTICALS
  Company Number: US-ACADIA PHARMACEUTICALS INC.-ACA-2025-PIM-010485

PATIENT
  Sex: Female

DRUGS (2)
  1. NUPLAZID [Suspect]
     Active Substance: PIMAVANSERIN TARTRATE
     Indication: Parkinson^s disease psychosis
     Dosage: 34 MILLIGRAM, QD
     Route: 048
  2. SEROQUEL [Concomitant]
     Active Substance: QUETIAPINE FUMARATE
     Dosage: UNK

REACTIONS (7)
  - Dementia [Not Recovered/Not Resolved]
  - Psychotic disorder [Unknown]
  - Hallucination [Not Recovered/Not Resolved]
  - Urinary tract infection [Unknown]
  - Delusion [Recovering/Resolving]
  - Ill-defined disorder [Recovering/Resolving]
  - Agitation [Unknown]
